FAERS Safety Report 13688040 (Version 1)
Quarter: 2017Q2

REPORT INFORMATION
  Report Type: Spontaneous
  Country: US (occurrence: US)
  Receive Date: 20170626
  Receipt Date: 20170626
  Transmission Date: 20170830
  Serious: No
  Sender: FDA-Public Use
  Company Number: US-ACCORD-042698

PATIENT
  Age: 70 Year
  Sex: Male
  Weight: 89.81 kg

DRUGS (3)
  1. CLONAZEPAM ACCORD [Suspect]
     Active Substance: CLONAZEPAM
     Indication: INSOMNIA
     Dosage: BEDTIME
  2. CRESTOR [Concomitant]
     Active Substance: ROSUVASTATIN CALCIUM
  3. NEXIUM [Concomitant]
     Active Substance: ESOMEPRAZOLE MAGNESIUM

REACTIONS (3)
  - Hallucination [Unknown]
  - Nightmare [Unknown]
  - Product substitution issue [Unknown]
